FAERS Safety Report 4999501-7 (Version None)
Quarter: 2006Q2

REPORT INFORMATION
  Report Type: 
  Country: None (occurrence: None)
  Receive Date: 20060510
  Receipt Date: 20060510
  Transmission Date: 20061013
  Serious: Yes (Life-Threatening)
  Sender: FDA-Public Use
  Company Number: None

PATIENT
  Age: 87 Year
  Sex: Female
  Weight: 62.3 kg

DRUGS (9)
  1. ASPIRIN [Suspect]
     Indication: CORONARY ARTERY DISEASE
     Dosage: 81 MG PO QD
     Route: 048
     Dates: start: 20060205, end: 20060215
  2. DILTIAZEM [Concomitant]
  3. METOPROLOL TARTRATE [Concomitant]
  4. BUSPIRONE [Concomitant]
  5. FUROSEMIDE [Concomitant]
  6. TRAZODONE HCL [Concomitant]
  7. LANSOPRAZOLE [Concomitant]
  8. FERROUS SULFATE TAB [Concomitant]
  9. SENNA [Concomitant]

REACTIONS (5)
  - COUGH [None]
  - DYSPNOEA [None]
  - HAEMOGLOBIN DECREASED [None]
  - OCCULT BLOOD POSITIVE [None]
  - UPPER GASTROINTESTINAL HAEMORRHAGE [None]
